FAERS Safety Report 5136050-X (Version None)
Quarter: 2006Q4

REPORT INFORMATION
  Report Type: 
  Country: None (occurrence: None)
  Receive Date: 20061020
  Receipt Date: 20061016
  Transmission Date: 20070319
  Serious: Yes (Hospitalization, Other)
  Sender: FDA-Public Use
  Company Number: HQWYE172117OCT06

PATIENT
  Age: 70 Year
  Sex: Female
  Weight: 99.11 kg

DRUGS (12)
  1. MYLOTARG [Suspect]
     Indication: ACUTE MYELOID LEUKAEMIA
     Dosage: SEE IMAGE, INTRAVENOUS
     Route: 042
     Dates: start: 20041218, end: 20041218
  2. MYLOTARG [Suspect]
     Indication: ACUTE MYELOID LEUKAEMIA
     Dosage: SEE IMAGE, INTRAVENOUS
     Route: 042
     Dates: start: 20041225, end: 20041225
  3. ALLOPURINOL [Concomitant]
  4. SYNTHROID [Concomitant]
  5. ZETIA [Concomitant]
  6. NORVASC [Concomitant]
  7. ACETAMINOPHEN [Concomitant]
  8. VANCOMYCIN [Concomitant]
  9. TOBRAMYCIN [Concomitant]
  10. LEVAQUIN [Concomitant]
  11. ZOSYN [Concomitant]
  12. FLAGYL [Concomitant]

REACTIONS (5)
  - ASPARTATE AMINOTRANSFERASE INCREASED [None]
  - BLOOD ALKALINE PHOSPHATASE INCREASED [None]
  - DIARRHOEA [None]
  - PYREXIA [None]
  - WEIGHT INCREASED [None]
